FAERS Safety Report 9610972 (Version 2)
Quarter: 2013Q4

REPORT INFORMATION
  Report Type: Report from Study
  Country: GB (occurrence: GB)
  Receive Date: 20131009
  Receipt Date: 20131219
  Transmission Date: 20140711
  Serious: Yes (Hospitalization)
  Sender: FDA-Public Use
  Company Number: GB-ROCHE-1286715

PATIENT
  Age: 77 Year
  Sex: Male

DRUGS (11)
  1. RANIBIZUMAB [Suspect]
     Indication: AGE-RELATED MACULAR DEGENERATION
     Route: 050
     Dates: start: 20111004
  2. RANIBIZUMAB [Suspect]
     Route: 050
     Dates: start: 20130109
  3. RANIBIZUMAB [Suspect]
     Route: 050
     Dates: start: 20130814
  4. METHOTREXATE [Suspect]
     Indication: RHEUMATOID ARTHRITIS
     Route: 065
     Dates: start: 201203
  5. LANSOPRAZOLE [Concomitant]
     Route: 065
     Dates: start: 2002
  6. SULPHASALAZINE [Concomitant]
     Route: 065
     Dates: start: 1992
  7. THYROXINE [Concomitant]
     Route: 065
     Dates: start: 1992
  8. RAMIPRIL [Concomitant]
     Route: 065
     Dates: start: 2002, end: 20130509
  9. RAMIPRIL [Concomitant]
     Route: 065
     Dates: start: 20130509
  10. SIMVASTATIN [Concomitant]
     Route: 065
     Dates: start: 2002, end: 20130509
  11. SIMVASTATIN [Concomitant]
     Route: 065
     Dates: start: 20130509

REACTIONS (3)
  - Acute myocardial infarction [Recovered/Resolved]
  - Non-Hodgkin^s lymphoma [Recovering/Resolving]
  - Anaemia [Recovered/Resolved]
